FAERS Safety Report 17966588 (Version 2)
Quarter: 2020Q3

REPORT INFORMATION
  Report Type: Spontaneous
  Country: US (occurrence: US)
  Receive Date: 20200701
  Receipt Date: 20200705
  Transmission Date: 20201103
  Serious: No
  Sender: FDA-Public Use
  Company Number: US-BIOGEN-2020BI00890783

PATIENT
  Age: 19 Year
  Sex: Female

DRUGS (1)
  1. VUMERITY [Suspect]
     Active Substance: DIROXIMEL FUMARATE
     Indication: MULTIPLE SCLEROSIS
     Dosage: STARTING DOSE
     Route: 048
     Dates: start: 20200623

REACTIONS (8)
  - Erythema [Not Recovered/Not Resolved]
  - Hypoventilation [Recovered/Resolved]
  - Flushing [Recovered/Resolved]
  - Rash pruritic [Recovered/Resolved]
  - Nervousness [Recovered/Resolved]
  - Feeling hot [Not Recovered/Not Resolved]
  - Burning sensation [Recovered/Resolved]
  - Agitation [Recovered/Resolved]

NARRATIVE: CASE EVENT DATE: 20200623
